FAERS Safety Report 7738904-4 (Version None)
Quarter: 2011Q3

REPORT INFORMATION
  Report Type: 
  Country: None (occurrence: None)
  Receive Date: 20110909
  Receipt Date: 20110831
  Transmission Date: 20111222
  Serious: Yes (Hospitalization)
  Sender: FDA-Public Use
  Company Number: US-BIOGENIDEC-2011BI033486

PATIENT
  Age: 46 Year
  Sex: Female

DRUGS (2)
  1. EFFEXOR [Concomitant]
     Indication: DEPRESSION
  2. AVONEX [Suspect]
     Indication: MULTIPLE SCLEROSIS
     Route: 030
     Dates: start: 20080301

REACTIONS (3)
  - VERTIGO [None]
  - FALL [None]
  - HEAD INJURY [None]
